FAERS Safety Report 10334980 (Version 1)
Quarter: 2014Q3

REPORT INFORMATION
  Report Type: Spontaneous
  Country: DE (occurrence: DE)
  Receive Date: 20140723
  Receipt Date: 20140723
  Transmission Date: 20150326
  Serious: Yes (Other)
  Sender: FDA-Public Use
  Company Number: PHHY2014DE088145

PATIENT

DRUGS (6)
  1. OXYTETRACYCLINE [Suspect]
     Active Substance: OXYTETRACYCLINE
     Route: 064
  2. ACYCLOVIR. [Suspect]
     Active Substance: ACYCLOVIR
     Route: 064
  3. BUDESONIDE. [Suspect]
     Active Substance: BUDESONIDE
     Route: 064
  4. NICOTINE. [Suspect]
     Active Substance: NICOTINE
     Route: 064
  5. CIPROFLOXACIN. [Suspect]
     Active Substance: CIPROFLOXACIN
     Dosage: UNK
     Route: 064
  6. ERYTHROMYCIN. [Suspect]
     Active Substance: ERYTHROMYCIN
     Route: 064

REACTIONS (2)
  - Hypospadias [Unknown]
  - Foetal exposure during pregnancy [Unknown]
